FAERS Safety Report 19759762 (Version 7)
Quarter: 2022Q1

REPORT INFORMATION
  Report Type: Report from Study
  Country: US (occurrence: US)
  Receive Date: 20210830
  Receipt Date: 20220122
  Transmission Date: 20220423
  Serious: Yes (Hospitalization, Disabling, Other)
  Sender: FDA-Public Use
  Company Number: US-NOVARTISPH-NVSC2021US195662

PATIENT
  Age: 60 Year
  Sex: Female

DRUGS (3)
  1. ENTRESTO [Suspect]
     Active Substance: SACUBITRIL\VALSARTAN
     Indication: Product used for unknown indication
     Dosage: UNK UNK, BID
     Route: 048
     Dates: start: 202105
  2. CARVEDILOL [Concomitant]
     Active Substance: CARVEDILOL
     Indication: Product used for unknown indication
     Dosage: UNK
     Route: 065
  3. SPIRONOLACTONE [Concomitant]
     Active Substance: SPIRONOLACTONE
     Indication: Product used for unknown indication
     Dosage: UNK
     Route: 065

REACTIONS (26)
  - Feeling abnormal [Unknown]
  - Umbilical hernia [Unknown]
  - Vomiting projectile [Unknown]
  - Intestinal obstruction [Unknown]
  - Cardiac failure [Unknown]
  - Gait disturbance [Unknown]
  - Malaise [Unknown]
  - Blood glucose decreased [Unknown]
  - Decreased activity [Unknown]
  - Fatigue [Unknown]
  - Frequent bowel movements [Unknown]
  - Flatulence [Unknown]
  - Dry eye [Unknown]
  - Swelling of eyelid [Unknown]
  - Weight decreased [Unknown]
  - Eyelid pain [Unknown]
  - Ocular discomfort [Unknown]
  - Abdominal discomfort [Unknown]
  - Cardiovascular disorder [Unknown]
  - Angular cheilitis [Unknown]
  - Infection [Unknown]
  - Impaired healing [Unknown]
  - Ear disorder [Unknown]
  - Peripheral swelling [Unknown]
  - Dyspnoea [Unknown]
  - Hypotension [Unknown]

NARRATIVE: CASE EVENT DATE: 20211019
